FAERS Safety Report 16897854 (Version 1)
Quarter: 2019Q4

REPORT INFORMATION
  Report Type: Spontaneous
  Country: US (occurrence: US)
  Receive Date: 20191009
  Receipt Date: 20191009
  Transmission Date: 20200122
  Serious: Yes (Other)
  Sender: FDA-Public Use
  Company Number: US-SA-2019SA274601

PATIENT
  Sex: Female

DRUGS (2)
  1. AUBAGIO [Suspect]
     Active Substance: TERIFLUNOMIDE
     Dosage: 14 MG
     Dates: start: 20180315, end: 201803
  2. AUBAGIO [Suspect]
     Active Substance: TERIFLUNOMIDE
     Dosage: 7 MG
     Dates: start: 20180810

REACTIONS (6)
  - Lymphopenia [Unknown]
  - Madarosis [Unknown]
  - Autoimmune thyroiditis [Unknown]
  - Onychoclasis [Unknown]
  - Gastrointestinal disorder [Unknown]
  - Alopecia [Not Recovered/Not Resolved]
